FAERS Safety Report 16158879 (Version 1)
Quarter: 2019Q2

REPORT INFORMATION
  Report Type: Spontaneous
  Country: US (occurrence: US)
  Receive Date: 20190403
  Receipt Date: 20190403
  Transmission Date: 20190711
  Serious: Yes (Other)
  Sender: FDA-Public Use
  Company Number: None

PATIENT
  Age: 41 Year
  Sex: Male
  Weight: 108 kg

DRUGS (3)
  1. DULOXETINE. [Suspect]
     Active Substance: DULOXETINE
     Indication: ANXIETY
     Route: 048
  2. DULOXETINE 60MG [Concomitant]
     Active Substance: DULOXETINE
     Dates: start: 20090401, end: 20190401
  3. DULOXETINE. [Suspect]
     Active Substance: DULOXETINE
     Indication: DEPRESSION
     Route: 048

REACTIONS (5)
  - Irritability [None]
  - Paraesthesia [None]
  - Withdrawal syndrome [None]
  - Feeling abnormal [None]
  - Product dose omission [None]

NARRATIVE: CASE EVENT DATE: 20190331
